FAERS Safety Report 6825220-8 (Version None)
Quarter: 2010Q3

REPORT INFORMATION
  Report Type: 
  Country: None (occurrence: None)
  Receive Date: 20100708
  Receipt Date: 20061218
  Transmission Date: 20110219
  Serious: No
  Sender: FDA-Public Use
  Company Number: US-PFIZER INC-2006155891

PATIENT
  Sex: Male
  Weight: 72.57 kg

DRUGS (6)
  1. CHANTIX [Suspect]
     Indication: SMOKING CESSATION THERAPY
     Dates: start: 20061209
  2. PLAVIX [Concomitant]
  3. PRILOSEC [Concomitant]
  4. VYTORIN [Concomitant]
  5. ACETYLSALICYLIC ACID [Concomitant]
  6. GLUCOSAMINE [Concomitant]

REACTIONS (2)
  - NAUSEA [None]
  - NIGHTMARE [None]
